FAERS Safety Report 13233518 (Version 1)
Quarter: 2017Q1

REPORT INFORMATION
  Report Type: Spontaneous
  Country: US (occurrence: US)
  Receive Date: 20170214
  Receipt Date: 20170214
  Transmission Date: 20170428
  Serious: Yes (Hospitalization)
  Sender: FDA-Public Use
  Company Number: None

PATIENT
  Age: 65 Year
  Sex: Female

DRUGS (5)
  1. METHYLPREDNISOLONE. [Suspect]
     Active Substance: METHYLPREDNISOLONE
  2. LEVOFLOXACIN. [Suspect]
     Active Substance: LEVOFLOXACIN
  3. PANTOPRAZOLE [Suspect]
     Active Substance: PANTOPRAZOLE SODIUM
  4. CEFOXITIN [Suspect]
     Active Substance: CEFOXITIN SODIUM
  5. CEFEPIME [Suspect]
     Active Substance: CEFEPIME HYDROCHLORIDE

REACTIONS (2)
  - Post procedural complication [None]
  - Clostridium test positive [None]

NARRATIVE: CASE EVENT DATE: 20150826
